FAERS Safety Report 10925732 (Version 4)
Quarter: 2015Q3

REPORT INFORMATION
  Report Type: Report from Study
  Country: NZ (occurrence: NZ)
  Receive Date: 20150318
  Receipt Date: 20150825
  Transmission Date: 20151125
  Serious: Yes (Hospitalization)
  Sender: FDA-Public Use
  Company Number: NZ-CELGENE-NZL-2015012786

PATIENT
  Age: 49 Year
  Sex: Male
  Weight: 101 kg

DRUGS (4)
  1. INHIBACE [Concomitant]
     Active Substance: CILAZAPRIL ANHYDROUS
     Indication: HYPERTENSION
     Route: 048
     Dates: start: 2009
  2. OMEPRAZOLE. [Concomitant]
     Active Substance: OMEPRAZOLE
     Indication: PROPHYLAXIS
     Route: 048
     Dates: start: 2009
  3. CC-10004 [Suspect]
     Active Substance: APREMILAST
     Indication: PSORIATIC ARTHROPATHY
     Route: 048
     Dates: start: 20120927, end: 20150110
  4. NAPROSYN [Concomitant]
     Active Substance: NAPROXEN
     Indication: ANALGESIC THERAPY
     Route: 048
     Dates: start: 20140812

REACTIONS (1)
  - Pulmonary sarcoidosis [Recovered/Resolved]

NARRATIVE: CASE EVENT DATE: 20150110
